FAERS Safety Report 4557340-5 (Version None)
Quarter: 2005Q1

REPORT INFORMATION
  Report Type: 
  Country: None (occurrence: None)
  Receive Date: 20050119
  Receipt Date: 20050119
  Transmission Date: 20050727
  Serious: Yes (Hospitalization)
  Sender: FDA-Public Use
  Company Number: None

PATIENT
  Age: 75 Year
  Sex: Male
  Weight: 81.6475 kg

DRUGS (10)
  1. FOSINOPRIL SODIUM [Suspect]
     Indication: HYPERTENSION
     Dosage: 40MG   QDAY   ORAL
     Route: 048
     Dates: start: 20030617, end: 20041122
  2. FOSINOPRIL SODIUM [Suspect]
     Indication: RENAL FAILURE CHRONIC
     Dosage: 40MG   QDAY   ORAL
     Route: 048
     Dates: start: 20030617, end: 20041122
  3. SIMVASTATIN [Concomitant]
  4. OMEPRAZOLE [Concomitant]
  5. NIFEDIPINE [Concomitant]
  6. ATENOLOL [Concomitant]
  7. TYLENOL W/ CODEINE NO. 3 [Concomitant]
  8. THIAMINE [Concomitant]
  9. ASPIRIN [Concomitant]
  10. ALLOPURINOL [Concomitant]

REACTIONS (2)
  - ANGIONEUROTIC OEDEMA [None]
  - TONGUE OEDEMA [None]
